FAERS Safety Report 9934603 (Version 1)
Quarter: 2014Q1

REPORT INFORMATION
  Report Type: Spontaneous
  Country: SE (occurrence: None)
  Receive Date: 20140226
  Receipt Date: 20140226
  Transmission Date: 20141002
  Serious: Yes (Other)
  Sender: FDA-Public Use
  Company Number: 2014HINLIT0130

PATIENT
  Age: 65 Year
  Sex: Female

DRUGS (1)
  1. LITHIUM [Suspect]
     Indication: DEPRESSION
     Dosage: DURATION: 10220DAYS

REACTIONS (2)
  - Renal failure chronic [None]
  - Blood creatine phosphokinase increased [None]
